FAERS Safety Report 12494290 (Version 2)
Quarter: 2016Q3

REPORT INFORMATION
  Report Type: Report from Study
  Country: DE (occurrence: DE)
  Receive Date: 20160623
  Receipt Date: 20160705
  Transmission Date: 20161109
  Serious: Yes (Hospitalization)
  Sender: FDA-Public Use
  Company Number: PHHO2016DE008848

PATIENT
  Age: 4 Year
  Sex: Male
  Weight: 20 kg

DRUGS (6)
  1. EVEROLIMUS [Suspect]
     Active Substance: EVEROLIMUS
     Indication: EPILEPSY
     Dosage: 9-5 NG/ML
     Route: 048
  2. OSPOLOT [Concomitant]
     Active Substance: SULTHIAME
     Indication: EPILEPSY
     Dosage: 75 MG, BID
     Route: 048
     Dates: start: 201205
  3. SABRIL [Concomitant]
     Active Substance: VIGABATRIN
     Indication: EPILEPSY
     Dosage: 1250 MG, BID
     Route: 048
     Dates: start: 20160523
  4. TOPIRAMAT [Concomitant]
     Active Substance: TOPIRAMATE
     Dosage: UNK
     Route: 048
  5. TOPIRAMAT [Concomitant]
     Active Substance: TOPIRAMATE
     Indication: EPILEPSY
     Dosage: 50 MG, BID
     Route: 048
     Dates: start: 201403, end: 20160616
  6. RAD001 [Suspect]
     Active Substance: EVEROLIMUS
     Indication: EPILEPSY
     Dosage: 12 MG, QD
     Route: 048

REACTIONS (1)
  - Status epilepticus [Recovered/Resolved]

NARRATIVE: CASE EVENT DATE: 20160616
